FAERS Safety Report 5083194-7 (Version None)
Quarter: 2006Q3

REPORT INFORMATION
  Report Type: 
  Country: None (occurrence: None)
  Receive Date: 20060724
  Receipt Date: 20031121
  Transmission Date: 20061208
  Serious: Yes (Hospitalization)
  Sender: FDA-Public Use
  Company Number: DRON00206001371

PATIENT
  Age: 33 Year
  Sex: Female

DRUGS (3)
  1. MARINOL [Suspect]
     Indication: MUSCLE SPASTICITY
     Dosage: 1 DOSAGE FORM BID ORAL DAILY DOSE: TITRATION DOSE FROM 2.5 MG TO 12.5 MG
     Dates: start: 20010613, end: 20010913
  2. INJECTED CONTRACEPTION [Concomitant]
     Indication: MULTIPLE SCLEROSIS
  3. METHYLPREDNISOLONE [Concomitant]

REACTIONS (1)
  - MULTIPLE SCLEROSIS RELAPSE [None]
